FAERS Safety Report 6145340-3 (Version None)
Quarter: 2009Q2

REPORT INFORMATION
  Report Type: 
  Country: None (occurrence: None)
  Receive Date: 20090402
  Receipt Date: 20090325
  Transmission Date: 20091009
  Serious: No
  Sender: FDA-Public Use
  Company Number: DSA_33414_2009

PATIENT
  Sex: Female

DRUGS (11)
  1. XENAZINE [Suspect]
     Indication: DYSTONIA
     Dosage: (DF)
     Dates: start: 20000201, end: 20090201
  2. XENAZINE [Suspect]
     Indication: TOURETTE'S DISORDER
     Dosage: (DF)
     Dates: start: 20000201, end: 20090201
  3. IMIPRAMINE [Concomitant]
  4. TRAZODONE HCL [Concomitant]
  5. LAMICTAL [Concomitant]
  6. XANAX [Concomitant]
  7. LEXAPRO [Concomitant]
  8. VICODIN [Concomitant]
  9. NAPROSYN [Concomitant]
  10. ALLEGRA [Concomitant]
  11. ALBUTEROL [Concomitant]

REACTIONS (5)
  - ANXIETY [None]
  - FEELING ABNORMAL [None]
  - HALLUCINATION [None]
  - INSOMNIA [None]
  - PALPITATIONS [None]
